FAERS Safety Report 7748514-0 (Version None)
Quarter: 2011Q3

REPORT INFORMATION
  Report Type: 
  Country: None (occurrence: None)
  Receive Date: 20110914
  Receipt Date: 20110902
  Transmission Date: 20111222
  Serious: No
  Sender: FDA-Public Use
  Company Number: US-BIOGENIDEC-2011BI020064

PATIENT
  Age: 44 Year
  Sex: Female

DRUGS (2)
  1. TYSABRI [Suspect]
     Indication: MULTIPLE SCLEROSIS
     Route: 042
     Dates: start: 20110429, end: 20110624
  2. BENADRYL [Concomitant]
     Indication: PREMEDICATION

REACTIONS (4)
  - HYPERSENSITIVITY [None]
  - HEART RATE INCREASED [None]
  - FLUSHING [None]
  - RASH [None]
